FAERS Safety Report 4496949-4 (Version None)
Quarter: 2004Q4

REPORT INFORMATION
  Report Type: 
  Country: None (occurrence: None)
  Receive Date: 20041109
  Receipt Date: 20041101
  Transmission Date: 20050328
  Serious: Yes (Life-Threatening, Hospitalization)
  Sender: FDA-Public Use
  Company Number: US-MERCK-0411USA00138

PATIENT
  Age: 77 Year
  Sex: Female

DRUGS (3)
  1. VIOXX [Suspect]
     Indication: ARTHRITIS
     Route: 048
     Dates: start: 20000101, end: 20040901
  2. NORVASC [Concomitant]
     Route: 065
  3. SYNTHROID [Concomitant]
     Route: 065

REACTIONS (3)
  - CEREBROVASCULAR ACCIDENT [None]
  - RENAL FAILURE [None]
  - VISUAL ACUITY REDUCED [None]
